FAERS Safety Report 8989148 (Version 1)
Quarter: 2012Q4

REPORT INFORMATION
  Report Type: 
  Country: US (occurrence: US)
  Receive Date: 20121227
  Receipt Date: 20121227
  Transmission Date: 20130627
  Serious: No
  Sender: FDA-Public Use
  Company Number: US-ASTRAZENECA-2012SE93351

PATIENT
  Age: 44 Year
  Sex: Female
  Weight: 78.9 kg

DRUGS (3)
  1. NEXIUM [Suspect]
     Indication: GASTROOESOPHAGEAL REFLUX DISEASE
     Route: 048
     Dates: start: 20121209
  2. NEXIUM [Suspect]
     Indication: GASTRITIS
     Route: 048
     Dates: start: 20121209
  3. PRILOSEC [Suspect]
     Indication: GASTROOESOPHAGEAL REFLUX DISEASE
     Route: 048
     Dates: start: 201211, end: 201211

REACTIONS (3)
  - Throat irritation [Unknown]
  - Oropharyngeal pain [Unknown]
  - Dry mouth [Recovered/Resolved]
